FAERS Safety Report 8598841-2 (Version None)
Quarter: 2012Q3

REPORT INFORMATION
  Report Type: 
  Country: None (occurrence: None)
  Receive Date: 20120816
  Receipt Date: 20120809
  Transmission Date: 20120928
  Serious: Yes (Hospitalization)
  Sender: FDA-Public Use
  Company Number: FR-GLAXOSMITHKLINE-B0821728A

PATIENT
  Sex: Male

DRUGS (8)
  1. ARIXTRA [Suspect]
     Indication: PULMONARY EMBOLISM
     Dosage: 7.5MG PER DAY
     Route: 058
     Dates: start: 20120523
  2. NEO-MERCAZOLE TAB [Concomitant]
     Dosage: .5UNIT PER DAY
     Route: 048
  3. ALFUZOSIN HYDROCHLORIDE [Concomitant]
     Route: 048
  4. OLMESARTAN MEDOXOMIL [Concomitant]
     Dosage: 1UNIT PER DAY
     Route: 048
  5. PREVISCAN [Suspect]
     Indication: PULMONARY EMBOLISM
     Dosage: 20MG PER DAY
     Route: 048
     Dates: start: 20120523, end: 20120528
  6. LERCANIDIPINE [Concomitant]
     Dosage: 1UNIT PER DAY
     Route: 048
  7. AMOXICILLIN [Suspect]
     Indication: PNEUMONIA
     Dosage: 1G PER DAY
     Route: 048
     Dates: start: 20120515, end: 20120522
  8. PERMIXON [Concomitant]
     Dosage: 1UNIT PER DAY
     Route: 048

REACTIONS (2)
  - CHOLESTASIS [None]
  - HEPATOCELLULAR INJURY [None]
